FAERS Safety Report 7046963-X (Version None)
Quarter: 2010Q4

REPORT INFORMATION
  Report Type: 
  Country: None (occurrence: None)
  Receive Date: 20101015
  Receipt Date: 20101012
  Transmission Date: 20110411
  Serious: Yes (Other)
  Sender: FDA-Public Use
  Company Number: US-BRISTOL-MYERS SQUIBB COMPANY-15330046

PATIENT
  Age: 23 Year
  Sex: Female

DRUGS (2)
  1. ABILIFY [Suspect]
  2. XANAX [Concomitant]

REACTIONS (3)
  - DYSPHAGIA [None]
  - LOSS OF CONSCIOUSNESS [None]
  - MEDICATION ERROR [None]
